FAERS Safety Report 4599579-9 (Version None)
Quarter: 2005Q1

REPORT INFORMATION
  Report Type: 
  Country: None (occurrence: None)
  Receive Date: 20050303
  Receipt Date: 20050222
  Transmission Date: 20050727
  Serious: Yes (Hospitalization)
  Sender: FDA-Public Use
  Company Number: 2005UW03037

PATIENT
  Age: 63 Year
  Sex: Male
  Weight: 82 kg

DRUGS (2)
  1. IRESSA [Suspect]
     Indication: NASOPHARYNGEAL CANCER
     Dosage: 1500 MG Q3WK PO
     Route: 048
     Dates: start: 20040927
  2. DOCETAXEL [Suspect]
     Indication: NASOPHARYNGEAL CANCER
     Dosage: 152 MG Q3WK IV
     Route: 042
     Dates: start: 20040929

REACTIONS (1)
  - FEBRILE NEUTROPENIA [None]
